FAERS Safety Report 8031447-2 (Version None)
Quarter: 2012Q1

REPORT INFORMATION
  Report Type: 
  Country: None (occurrence: None)
  Receive Date: 20120109
  Receipt Date: 20120103
  Transmission Date: 20120608
  Serious: Yes (Hospitalization)
  Sender: FDA-Public Use
  Company Number: US-BAYER-2011-014275

PATIENT
  Age: 41 Year
  Sex: Female
  Weight: 79 kg

DRUGS (7)
  1. YASMIN [Suspect]
     Indication: CONTRACEPTION
     Dosage: UNK
     Dates: start: 20051024, end: 20101024
  2. YASMIN [Suspect]
     Indication: PREMENSTRUAL SYNDROME
  3. DROSPIRENONE AND ETHINYL ESTRADIOL [Suspect]
     Indication: PREMENSTRUAL SYNDROME
  4. YASMIN [Suspect]
     Indication: ACNE
  5. DROSPIRENONE AND ETHINYL ESTRADIOL [Suspect]
     Indication: CONTRACEPTION
     Dosage: UNK
     Dates: start: 20051024, end: 20101024
  6. DROSPIRENONE AND ETHINYL ESTRADIOL [Suspect]
     Indication: ACNE
  7. DEXATRIM [Concomitant]

REACTIONS (5)
  - EMOTIONAL DISTRESS [None]
  - BILIARY DYSKINESIA [None]
  - PAIN [None]
  - ANXIETY [None]
  - ABDOMINAL PAIN [None]
